FAERS Safety Report 25240117 (Version 2)
Quarter: 2025Q2

REPORT INFORMATION
  Report Type: Spontaneous
  Country: US (occurrence: US)
  Receive Date: 20250425
  Receipt Date: 20250429
  Transmission Date: 20250717
  Serious: Yes (Other)
  Sender: UCB
  Company Number: US-UCBSA-2025023704

PATIENT
  Age: 37 Year
  Sex: Female
  Weight: 31.519 kg

DRUGS (2)
  1. CIMZIA [Suspect]
     Active Substance: CERTOLIZUMAB PEGOL
     Indication: Rheumatoid arthritis
     Dosage: 400 MILLIGRAM, EV 4 WEEKS
     Route: 058
     Dates: start: 202408
  2. OMEPRAZOLE [Concomitant]
     Active Substance: OMEPRAZOLE
     Indication: Gastrooesophageal reflux disease

REACTIONS (6)
  - Rheumatoid arthritis [Unknown]
  - Impaired gastric emptying [Not Recovered/Not Resolved]
  - Skin discolouration [Unknown]
  - Gastrooesophageal reflux disease [Unknown]
  - Injection site discolouration [Not Recovered/Not Resolved]
  - Injection site pain [Not Recovered/Not Resolved]

NARRATIVE: CASE EVENT DATE: 20250201
